FAERS Safety Report 8556247-6 (Version None)
Quarter: 2012Q3

REPORT INFORMATION
  Report Type: 
  Country: None (occurrence: None)
  Receive Date: 20120801
  Receipt Date: 20120724
  Transmission Date: 20120928
  Serious: Yes (Other)
  Sender: FDA-Public Use
  Company Number: JP-VERTEX PHARMACEUTICALS INC.-AE-2012-006756

PATIENT
  Age: 50 Year
  Sex: Male

DRUGS (11)
  1. PEG-INTRON [Concomitant]
     Indication: HEPATITIS C
     Route: 058
     Dates: start: 20120202, end: 20120306
  2. MUCODYNE [Concomitant]
     Route: 048
     Dates: start: 20120523, end: 20120610
  3. RIBAVIRIN [Concomitant]
     Indication: HEPATITIS C
     Route: 048
     Dates: start: 20120202, end: 20120724
  4. TELAVIC (TELAPREVIR) [Suspect]
     Route: 048
     Dates: start: 20120207
  5. PL COMBINATION GRANULES [Concomitant]
     Route: 048
     Dates: start: 20120711, end: 20120728
  6. PL COMBINATION GRANULES [Concomitant]
     Route: 048
     Dates: start: 20120523, end: 20120610
  7. MUCODYNE [Concomitant]
     Route: 048
     Dates: start: 20120711, end: 20120728
  8. PEG-INTRON [Concomitant]
     Route: 058
     Dates: start: 20120307, end: 20120718
  9. TELAVIC (TELAPREVIR) [Suspect]
     Indication: HEPATITIS C
     Route: 048
     Dates: start: 20120202, end: 20120206
  10. LOXONIN [Concomitant]
     Route: 048
     Dates: start: 20120203
  11. MUCOSOLVAN [Concomitant]
     Route: 048
     Dates: start: 20120718, end: 20120728

REACTIONS (2)
  - PANCYTOPENIA [None]
  - RETINAL HAEMORRHAGE [None]
